FAERS Safety Report 5618944-1 (Version None)
Quarter: 2008Q1

REPORT INFORMATION
  Report Type: 
  Country: None (occurrence: None)
  Receive Date: 20080207
  Receipt Date: 20080126
  Transmission Date: 20080703
  Serious: Yes (Other)
  Sender: FDA-Public Use
  Company Number: US-PFIZER INC-2007083215

PATIENT
  Sex: Female
  Weight: 71.363 kg

DRUGS (13)
  1. CHANTIX [Suspect]
     Indication: EX-SMOKER
     Dates: start: 20070101, end: 20070901
  2. CHEMOTHERAPY NOS [Suspect]
     Indication: LUNG NEOPLASM MALIGNANT
  3. CHEMOTHERAPY NOS [Suspect]
     Indication: BREAST CANCER
  4. LEXAPRO [Suspect]
  5. IMIPRAMINE [Concomitant]
  6. PRIMIDONE [Concomitant]
  7. PROVIGIL [Concomitant]
  8. TOPAMAX [Concomitant]
  9. KLONOPIN [Concomitant]
  10. LAMICTAL [Concomitant]
  11. NEXIUM [Concomitant]
     Indication: GASTROOESOPHAGEAL REFLUX DISEASE
  12. SINGULAIR [Concomitant]
  13. REQUIP [Concomitant]

REACTIONS (8)
  - BREAST CANCER [None]
  - CONSTIPATION [None]
  - DIARRHOEA [None]
  - ILL-DEFINED DISORDER [None]
  - LUNG NEOPLASM MALIGNANT [None]
  - NAUSEA [None]
  - VOMITING [None]
  - WEIGHT DECREASED [None]
